FAERS Safety Report 21266021 (Version 1)
Quarter: 2022Q3

REPORT INFORMATION
  Report Type: Spontaneous
  Country: US (occurrence: US)
  Receive Date: 20220829
  Receipt Date: 20220829
  Transmission Date: 20221027
  Serious: No
  Sender: FDA-Public Use
  Company Number: US-PFIZER INC-202200716757

PATIENT
  Age: 63 Year
  Sex: Male
  Weight: 77.11 kg

DRUGS (2)
  1. TOZINAMERAN [Interacting]
     Active Substance: TOZINAMERAN
     Indication: COVID-19 immunisation
     Dosage: DOSE 4 (BOOSTER), SINGLE
     Dates: start: 20220512, end: 20220512
  2. METHOTREXATE SODIUM [Interacting]
     Active Substance: METHOTREXATE SODIUM
     Dosage: 2.5 MG, WEEKLY, SATURDAY

REACTIONS (5)
  - Swelling [Recovered/Resolved]
  - Pain [Unknown]
  - Fatigue [Unknown]
  - Lymphadenopathy [Unknown]
  - Drug interaction [Unknown]

NARRATIVE: CASE EVENT DATE: 20220512
